FAERS Safety Report 18546287 (Version 1)
Quarter: 2020Q4

REPORT INFORMATION
  Report Type: Spontaneous
  Country: NL (occurrence: NL)
  Receive Date: 20201125
  Receipt Date: 20201125
  Transmission Date: 20210114
  Serious: Yes (Other)
  Sender: FDA-Public Use
  Company Number: NL-TEVA-2020-NL-1851708

PATIENT
  Sex: Male

DRUGS (1)
  1. TRAMADOL CAPSULE 50MG / BRAND NAME NOT SPECIFIED [Suspect]
     Active Substance: TRAMADOL
     Indication: BACK PAIN
     Dosage: 1-3D1C, 50 MG
     Dates: start: 20200910, end: 20201012

REACTIONS (1)
  - Homicidal ideation [Recovered/Resolved]
